FAERS Safety Report 23977635 (Version 3)
Quarter: 2024Q3

REPORT INFORMATION
  Report Type: Spontaneous
  Country: DE (occurrence: DE)
  Receive Date: 20240614
  Receipt Date: 20240819
  Transmission Date: 20241016
  Serious: Yes (Other)
  Sender: DAIICHI
  Company Number: DE-DSJP-DSE-2024-126159

PATIENT
  Age: 72 Year
  Sex: Male
  Weight: 100 kg

DRUGS (27)
  1. ENHERTU [Suspect]
     Active Substance: FAM-TRASTUZUMAB DERUXTECAN-NXKI
     Indication: Lung carcinoma cell type unspecified stage IV
     Dosage: 3 MG/KG, CYCLIC
     Route: 042
     Dates: start: 20230712, end: 20230712
  2. ENHERTU [Suspect]
     Active Substance: FAM-TRASTUZUMAB DERUXTECAN-NXKI
     Indication: Lung cancer metastatic
     Dosage: 4 MG/KG, CYCLIC
     Route: 042
     Dates: start: 20230802, end: 20230802
  3. ENHERTU [Suspect]
     Active Substance: FAM-TRASTUZUMAB DERUXTECAN-NXKI
     Dosage: 4 MG/KG, CYCLIC
     Route: 042
     Dates: start: 20230821, end: 20230821
  4. ENHERTU [Suspect]
     Active Substance: FAM-TRASTUZUMAB DERUXTECAN-NXKI
     Dosage: 4 MG/KG, CYCLIC
     Route: 042
     Dates: start: 20230915, end: 20230915
  5. ENHERTU [Suspect]
     Active Substance: FAM-TRASTUZUMAB DERUXTECAN-NXKI
     Dosage: 4 MG/KG, CYCLIC
     Route: 042
     Dates: start: 20231006, end: 20231006
  6. ENHERTU [Suspect]
     Active Substance: FAM-TRASTUZUMAB DERUXTECAN-NXKI
     Dosage: 4 MG/KG, CYCLIC
     Route: 042
     Dates: start: 20231031, end: 20231031
  7. ENHERTU [Suspect]
     Active Substance: FAM-TRASTUZUMAB DERUXTECAN-NXKI
     Dosage: 4 MG/KG, CYCLIC
     Route: 042
     Dates: start: 20231122, end: 20231122
  8. ENHERTU [Suspect]
     Active Substance: FAM-TRASTUZUMAB DERUXTECAN-NXKI
     Dosage: 4 MG/KG, CYCLIC
     Route: 042
     Dates: start: 20231213, end: 20231213
  9. ENHERTU [Suspect]
     Active Substance: FAM-TRASTUZUMAB DERUXTECAN-NXKI
     Dosage: 4 MG/KG, CYCLIC
     Route: 042
     Dates: start: 20240112, end: 20240112
  10. ENHERTU [Suspect]
     Active Substance: FAM-TRASTUZUMAB DERUXTECAN-NXKI
     Dosage: 4 MG/KG, CYCLIC
     Route: 042
     Dates: start: 20240201, end: 20240201
  11. ENHERTU [Suspect]
     Active Substance: FAM-TRASTUZUMAB DERUXTECAN-NXKI
     Dosage: 4 MG/KG, CYCLIC (WITH WEIGHT GAIN DOSE INCREASE TO 500 MG)
     Route: 042
     Dates: start: 20240226, end: 20240226
  12. ENHERTU [Suspect]
     Active Substance: FAM-TRASTUZUMAB DERUXTECAN-NXKI
     Dosage: 500 MG, CYCLIC
     Route: 042
     Dates: start: 20240321, end: 20240321
  13. ENHERTU [Suspect]
     Active Substance: FAM-TRASTUZUMAB DERUXTECAN-NXKI
     Dosage: 500 MG, CYCLIC
     Route: 042
     Dates: start: 20240411, end: 20240411
  14. ENHERTU [Suspect]
     Active Substance: FAM-TRASTUZUMAB DERUXTECAN-NXKI
     Dosage: 500 MG, CYCLIC
     Route: 042
     Dates: start: 20240502, end: 20240502
  15. ELIQUIS [Suspect]
     Active Substance: APIXABAN
     Indication: Pulmonary embolism
     Dosage: 5 MG, BID (1-0-1, MORNING AND EVENING)
     Route: 048
     Dates: start: 20240709
  16. DUTASTERIDE\TAMSULOSIN [Concomitant]
     Active Substance: DUTASTERIDE\TAMSULOSIN
     Indication: Benign prostatic hyperplasia
     Dosage: 1 DF, QD (0 - 0 - 1)
     Route: 048
     Dates: start: 20240709
  17. OXYGEN [Concomitant]
     Active Substance: OXYGEN
     Indication: Hypoxia
     Dosage: UNK
     Route: 065
     Dates: start: 202306
  18. UNSPECIFIED INGREDIENT [Concomitant]
     Active Substance: UNSPECIFIED INGREDIENT
     Indication: Immune-mediated hepatitis
     Dosage: UNK
     Route: 065
  19. PIPERACILLIN SODIUM\TAZOBACTAM SODIUM [Concomitant]
     Active Substance: PIPERACILLIN SODIUM\TAZOBACTAM SODIUM
     Indication: Febrile neutropenia
     Dosage: UNK
     Route: 065
  20. MEROPENEM [Concomitant]
     Active Substance: MEROPENEM
     Indication: Febrile neutropenia
     Dosage: UNK
     Route: 065
     Dates: start: 202306
  21. CIPROFLOXACIN [Concomitant]
     Active Substance: CIPROFLOXACIN
     Indication: Febrile neutropenia
     Dosage: UNK
     Route: 065
     Dates: start: 202306
  22. CALCIUM CARBONATE\CHOLECALCIFEROL [Concomitant]
     Active Substance: CALCIUM CARBONATE\CHOLECALCIFEROL
     Indication: Product used for unknown indication
     Dosage: UNK UNK, QD (1 - 0 - 0)
     Route: 048
  23. ZOMETA [Concomitant]
     Active Substance: ZOLEDRONIC ACID
     Indication: Product used for unknown indication
     Dosage: UNK (1 UNIT AT 14:18, EVERY 35 DAYS)
     Route: 042
  24. METOCLOPRAMIDE [Concomitant]
     Active Substance: METOCLOPRAMIDE
     Indication: Product used for unknown indication
     Dosage: UNK UNK, AS NEEDED
     Route: 048
  25. ONDANSETRON [Concomitant]
     Active Substance: ONDANSETRON
     Indication: Product used for unknown indication
     Dosage: UNK UNK, AS NEEDED
     Route: 048
  26. DEXAMETHASONE [Concomitant]
     Active Substance: DEXAMETHASONE
     Indication: Product used for unknown indication
     Dosage: UNK UNK, AS NEEDED
     Route: 048
  27. ABACUS [ACARBOSE] [Concomitant]
     Indication: Product used for unknown indication
     Dosage: 1 DF, QD (0 - 0 - 1)
     Route: 048
     Dates: start: 20240709

REACTIONS (11)
  - Metastases to bone [Unknown]
  - Disease progression [Unknown]
  - Weight increased [Recovering/Resolving]
  - Hepatic steatosis [Unknown]
  - Fall [Recovering/Resolving]
  - Haematoma [Recovering/Resolving]
  - Off label use [Recovered/Resolved]
  - Incorrect dose administered [Recovered/Resolved]
  - Intentional product use issue [Recovered/Resolved]
  - Intentional product use issue [Recovered/Resolved]
  - Incorrect dose administered [Recovered/Resolved]

NARRATIVE: CASE EVENT DATE: 20230712
